FAERS Safety Report 9528377 (Version 2)
Quarter: 2014Q2

REPORT INFORMATION
  Report Type: Spontaneous
  Country: US (occurrence: US)
  Receive Date: 20130917
  Receipt Date: 20140618
  Transmission Date: 20141212
  Serious: No
  Sender: FDA-Public Use
  Company Number: US-PFIZER INC-2013263035

PATIENT
  Sex: Male
  Weight: 65.76 kg

DRUGS (3)
  1. ALAVERT [Suspect]
     Indication: HYPERSENSITIVITY
     Dosage: 10 MG, ONCE
     Route: 048
     Dates: start: 201306, end: 201306
  2. ALAVERT [Suspect]
     Indication: EYE PRURITUS
  3. ALAVERT [Suspect]
     Indication: SEASONAL ALLERGY

REACTIONS (3)
  - Heart rate increased [Unknown]
  - Respiratory disorder [Unknown]
  - Tremor [Unknown]
